FAERS Safety Report 25207623 (Version 1)
Quarter: 2025Q2

REPORT INFORMATION
  Report Type: Spontaneous
  Country: US (occurrence: None)
  Receive Date: 20250416
  Receipt Date: 20250416
  Transmission Date: 20250716
  Serious: Yes (Hospitalization)
  Sender: FDA-CTU
  Company Number: None

PATIENT
  Age: 55 Year
  Sex: Female

DRUGS (15)
  1. AMBRISENTAN [Suspect]
     Active Substance: AMBRISENTAN
     Indication: Pulmonary arterial hypertension
  2. TYLENOL [Concomitant]
     Active Substance: ACETAMINOPHEN
  3. TRAMADOL HYDROCHLORIDE [Concomitant]
     Active Substance: TRAMADOL HYDROCHLORIDE
  4. ALPRAZOLAM [Concomitant]
     Active Substance: ALPRAZOLAM
  5. SILDENAFIL CITRATE [Concomitant]
     Active Substance: SILDENAFIL CITRATE
  6. BENADRYL ALLERGY ULTRATAB [Concomitant]
     Active Substance: DIPHENHYDRAMINE HYDROCHLORIDE
  7. TRELEGY ELLIPTA [Concomitant]
     Active Substance: FLUTICASONE FUROATE\UMECLIDINIUM BROMIDE\VILANTEROL TRIFENATATE
  8. FUROSEMIDE [Concomitant]
     Active Substance: FUROSEMIDE
  9. IBUPROFEN [Concomitant]
     Active Substance: IBUPROFEN
  10. POTASSIUM [Concomitant]
     Active Substance: POTASSIUM
  11. MAGNESIUM [Concomitant]
     Active Substance: MAGNESIUM
  12. VITAMIN E [Concomitant]
     Active Substance: .ALPHA.-TOCOPHEROL
  13. ASPIRIN [Concomitant]
     Active Substance: ASPIRIN
  14. ELIQUIS [Concomitant]
     Active Substance: APIXABAN
  15. ATORVASTATIN CALCIUM [Concomitant]
     Active Substance: ATORVASTATIN CALCIUM

REACTIONS (1)
  - Hospitalisation [None]

NARRATIVE: CASE EVENT DATE: 20250415
